FAERS Safety Report 10647835 (Version 1)
Quarter: 2014Q4

REPORT INFORMATION
  Report Type: Report from Study
  Country: US (occurrence: US)
  Receive Date: 20141212
  Receipt Date: 20141212
  Transmission Date: 20150529
  Serious: No
  Sender: FDA-Public Use
  Company Number: US-AMGEN INC.-USASL2014095154

PATIENT
  Age: 58 Year
  Sex: Male

DRUGS (2)
  1. ENBREL [Suspect]
     Active Substance: ETANERCEPT
     Indication: RHEUMATOID ARTHRITIS
     Dosage: UNK UNK, QWK
     Route: 065
     Dates: start: 20141001, end: 20141127
  2. METHOTREXATE [Concomitant]
     Active Substance: METHOTREXATE
     Dosage: UNK

REACTIONS (3)
  - Malaise [Recovered/Resolved]
  - Dizziness [Recovered/Resolved]
  - Injection site pain [Not Recovered/Not Resolved]

NARRATIVE: CASE EVENT DATE: 20141001
